FAERS Safety Report 21346354 (Version 1)
Quarter: 2022Q3

REPORT INFORMATION
  Report Type: Spontaneous
  Country: GB (occurrence: GB)
  Receive Date: 20220917
  Receipt Date: 20220917
  Transmission Date: 20221027
  Serious: Yes (Hospitalization)
  Sender: FDA-Public Use
  Company Number: None

PATIENT
  Age: 33 Year
  Sex: Female

DRUGS (3)
  1. TACROLIMUS [Suspect]
     Active Substance: TACROLIMUS
     Indication: Adverse drug reaction
     Dosage: 6MG TWICE A DAY
  2. SIROLIMUS [Suspect]
     Active Substance: SIROLIMUS
     Indication: Adverse drug reaction
  3. MYCOPHENOLATE MOFETIL [Suspect]
     Active Substance: MYCOPHENOLATE MOFETIL
     Indication: Adverse drug reaction
     Dosage: 500MG 4 TIMES A DAY

REACTIONS (1)
  - Neutropenic sepsis [Unknown]
